FAERS Safety Report 4590001-5 (Version None)
Quarter: 2005Q1

REPORT INFORMATION
  Report Type: 
  Country: None (occurrence: None)
  Receive Date: 20050218
  Receipt Date: 20050218
  Transmission Date: 20050727
  Serious: Yes (Other)
  Sender: FDA-Public Use
  Company Number: None

PATIENT
  Age: 42 Year
  Sex: Female
  Weight: 75.7507 kg

DRUGS (1)
  1. ZOCOR [Suspect]
     Indication: HYPERCHOLESTEROLAEMIA
     Dosage: 1/2 TAB-20MG- DAILY ORAL
     Route: 048
     Dates: start: 20040114, end: 20041004

REACTIONS (3)
  - MUSCLE SPASMS [None]
  - MYALGIA [None]
  - MYOSITIS [None]
